FAERS Safety Report 8013870-5 (Version None)
Quarter: 2011Q4

REPORT INFORMATION
  Report Type: 
  Country: None (occurrence: None)
  Receive Date: 20111229
  Receipt Date: 20111226
  Transmission Date: 20120403
  Serious: Yes (Death, Hospitalization)
  Sender: FDA-Public Use
  Company Number: FR-PFIZER INC-2011219620

PATIENT
  Age: 85 Year
  Sex: Female
  Weight: 61.3 kg

DRUGS (8)
  1. PERINDOPRIL ERBUMINE [Concomitant]
     Dosage: 1 DF, 1X/DAY
     Dates: end: 20110524
  2. NEXIUM [Concomitant]
     Dosage: 1 DF, 1X/DAY
     Dates: end: 20110524
  3. ASPIRIN [Concomitant]
     Dosage: 1 DF, 1X/DAY
     Dates: end: 20110524
  4. ZYVOX [Suspect]
     Indication: STAPHYLOCOCCAL INFECTION
     Dosage: 600 MG, 2X/DAY
     Dates: start: 20110506, end: 20110524
  5. ATORVASTATIN CALCIUM [Concomitant]
     Dosage: 1 DF, 1X/DAY
     Dates: end: 20110524
  6. BISOPROLOL FUMARATE [Concomitant]
     Dosage: 1 DF, 1X/DAY
     Dates: end: 20110524
  7. CALCIUM CARBONATE [Concomitant]
     Dosage: 2 DF PER DAY
     Dates: end: 20110524
  8. EUPRESSYL [Concomitant]
     Dosage: 3 DF PER DAY
     Dates: end: 20110524

REACTIONS (5)
  - VOMITING [None]
  - CYTOLYTIC HEPATITIS [None]
  - ILL-DEFINED DISORDER [None]
  - PANCREATITIS [None]
  - HYPERLACTACIDAEMIA [None]
